FAERS Safety Report 13907248 (Version 1)
Quarter: 2017Q3

REPORT INFORMATION
  Report Type: Spontaneous
  Country: US (occurrence: US)
  Receive Date: 20170825
  Receipt Date: 20170825
  Transmission Date: 20171127
  Serious: Yes (Hospitalization, Other)
  Sender: FDA-Public Use
  Company Number: US-ROCHE-1197972

PATIENT
  Age: 14 Year
  Sex: Female
  Weight: 25.3 kg

DRUGS (3)
  1. PREMARIN [Concomitant]
     Active Substance: ESTROGENS, CONJUGATED
     Indication: TURNER^S SYNDROME
     Route: 048
     Dates: start: 20121218
  2. NUTROPIN [Suspect]
     Active Substance: SOMATROPIN
     Route: 058
     Dates: start: 201005, end: 20130305
  3. NUTROPIN [Suspect]
     Active Substance: SOMATROPIN
     Indication: TURNER^S SYNDROME
     Route: 065
     Dates: start: 2006

REACTIONS (6)
  - Cough [Unknown]
  - Type 2 diabetes mellitus [Unknown]
  - Nasopharyngitis [Unknown]
  - Type 1 diabetes mellitus [Not Recovered/Not Resolved]
  - Nasal congestion [Unknown]
  - Otorrhoea [Unknown]

NARRATIVE: CASE EVENT DATE: 20130219
